FAERS Safety Report 8037472-X (Version None)
Quarter: 2012Q1

REPORT INFORMATION
  Report Type: 
  Country: None (occurrence: None)
  Receive Date: 20120111
  Receipt Date: 20120106
  Transmission Date: 20120608
  Serious: Yes (Hospitalization)
  Sender: FDA-Public Use
  Company Number: FR-PFIZER INC-2012004106

PATIENT
  Age: 71 Year
  Sex: Male

DRUGS (7)
  1. SIMVASTATIN [Concomitant]
     Indication: HYPERCHOLESTEROLAEMIA
     Dosage: 20MG DAILY
     Route: 048
  2. AVODART [Suspect]
     Indication: BENIGN PROSTATIC HYPERPLASIA
     Dosage: 0.5 MG, 1X/DAY
     Route: 048
     Dates: start: 20111003
  3. ZOLOFT [Concomitant]
     Indication: DEPRESSION
     Dosage: 50MG DAILY
     Route: 048
  4. INVANZ [Suspect]
     Indication: BACTERIAL INFECTION
     Dosage: UNK
     Route: 042
     Dates: start: 20111104, end: 20111115
  5. CLONAZEPAM [Concomitant]
     Indication: ANXIETY
     Dosage: 2.5MG/ML 10 DOSAGE FORMS DAILY
     Route: 048
     Dates: start: 20110930, end: 20111113
  6. NEURONTIN [Suspect]
     Dosage: 100 MG, 3X/DAY
     Route: 048
     Dates: start: 20110930, end: 20111113
  7. RISPERDAL [Suspect]
     Indication: ABNORMAL BEHAVIOUR
     Dosage: 0.5MG TWICE DAILY
     Route: 048
     Dates: start: 20111016

REACTIONS (1)
  - NEUTROPENIA [None]
